FAERS Safety Report 6129081-4 (Version None)
Quarter: 2009Q1

REPORT INFORMATION
  Report Type: 
  Country: None (occurrence: None)
  Receive Date: 20090324
  Receipt Date: 20090317
  Transmission Date: 20090719
  Serious: Yes (Death, Hospitalization, Other)
  Sender: FDA-Public Use
  Company Number: US-CELGENEUS-163-20785-09021111

PATIENT
  Sex: Female

DRUGS (36)
  1. THALOMID [Suspect]
     Indication: MULTIPLE MYELOMA
     Route: 048
     Dates: start: 20081001, end: 20090201
  2. THALOMID [Suspect]
     Route: 048
     Dates: start: 20080703, end: 20080930
  3. THALOMID [Suspect]
     Dosage: 50MG-100MG
     Route: 048
     Dates: start: 20070727, end: 20071101
  4. REVLIMID [Suspect]
     Indication: MULTIPLE MYELOMA
     Route: 048
     Dates: start: 20071101, end: 20080101
  5. REVLIMID [Suspect]
     Route: 048
     Dates: start: 20071001, end: 20070101
  6. DEXAMETHASONE [Suspect]
     Indication: MULTIPLE MYELOMA
     Route: 065
     Dates: start: 20070701
  7. DEXAMETHASONE [Suspect]
     Route: 048
     Dates: start: 20080703, end: 20080930
  8. CYCLOPHOSPHAMIDE [Suspect]
     Indication: MULTIPLE MYELOMA
     Route: 051
     Dates: start: 20080703, end: 20080930
  9. CYCLOPHOSPHAMIDE [Suspect]
     Route: 065
     Dates: start: 20080401, end: 20080101
  10. ETOPOSIDE [Suspect]
     Indication: MULTIPLE MYELOMA
     Route: 051
     Dates: start: 20080703, end: 20080930
  11. DOXIL [Suspect]
     Indication: MULTIPLE MYELOMA
     Route: 051
     Dates: start: 20080703, end: 20080930
  12. CISPLATIN [Suspect]
     Indication: MULTIPLE MYELOMA
     Route: 051
     Dates: start: 20080703, end: 20080930
  13. VELCADE [Suspect]
     Indication: MULTIPLE MYELOMA
     Route: 065
     Dates: start: 20080101, end: 20080101
  14. PERIFOSINE [Concomitant]
     Indication: MULTIPLE MYELOMA
     Route: 065
     Dates: start: 20071001, end: 20070101
  15. METHOTREXATE [Concomitant]
     Indication: MULTIPLE MYELOMA
     Route: 051
     Dates: start: 20081121, end: 20081123
  16. SODIUM CHLORIDE [Concomitant]
     Dates: start: 20080703, end: 20080930
  17. ARA-C [Concomitant]
     Indication: MULTIPLE MYELOMA
     Route: 051
     Dates: start: 20081122, end: 20081123
  18. ASPIRIN [Concomitant]
     Indication: ANTICOAGULANT THERAPY
     Route: 065
  19. PROCHLORPERAZINE [Concomitant]
     Indication: DRUG USE FOR UNKNOWN INDICATION
     Route: 065
  20. MORPHINE [Concomitant]
     Indication: DRUG USE FOR UNKNOWN INDICATION
     Route: 048
  21. FLUCONAZOLE [Concomitant]
     Indication: DRUG USE FOR UNKNOWN INDICATION
     Route: 048
  22. ACYCLOVIR [Concomitant]
     Indication: DRUG USE FOR UNKNOWN INDICATION
     Route: 048
  23. ZOFRAN [Concomitant]
     Indication: DRUG USE FOR UNKNOWN INDICATION
     Route: 048
  24. SENNA [Concomitant]
     Indication: DRUG USE FOR UNKNOWN INDICATION
     Route: 048
  25. COLACE [Concomitant]
     Indication: DRUG USE FOR UNKNOWN INDICATION
     Route: 048
  26. HYDROCODONE BITARTRATE [Concomitant]
     Indication: DRUG USE FOR UNKNOWN INDICATION
     Route: 065
  27. MOXIFLOXACIN HCL [Concomitant]
     Indication: DRUG USE FOR UNKNOWN INDICATION
     Route: 065
  28. BACTRIM [Concomitant]
     Indication: DRUG USE FOR UNKNOWN INDICATION
     Route: 048
  29. ESOMEPRAZOLE [Concomitant]
     Indication: DRUG USE FOR UNKNOWN INDICATION
     Route: 065
  30. LISINOPRIL [Concomitant]
     Indication: DRUG USE FOR UNKNOWN INDICATION
     Route: 048
  31. VICODIN [Concomitant]
     Indication: PAIN
     Dosage: 5/500
     Route: 048
  32. LEUCOVORIN CALCIUM [Concomitant]
     Indication: DRUG USE FOR UNKNOWN INDICATION
     Route: 051
     Dates: start: 20081122
  33. OROMORPH SR [Concomitant]
     Indication: DRUG USE FOR UNKNOWN INDICATION
     Route: 065
  34. COMPAZINE [Concomitant]
     Indication: DRUG USE FOR UNKNOWN INDICATION
     Route: 065
  35. ATIVAN [Concomitant]
     Indication: DRUG USE FOR UNKNOWN INDICATION
     Route: 065
  36. NEULASTA [Concomitant]
     Indication: DRUG USE FOR UNKNOWN INDICATION
     Route: 065

REACTIONS (7)
  - BRADYCARDIA [None]
  - CARDIAC TAMPONADE [None]
  - LEUKOPENIA [None]
  - MULTIPLE MYELOMA [None]
  - PANCYTOPENIA [None]
  - PNEUMONIA PNEUMOCOCCAL [None]
  - RESPIRATORY FAILURE [None]
